FAERS Safety Report 9200382 (Version 3)
Quarter: 2013Q2

REPORT INFORMATION
  Report Type: Spontaneous
  Country: SE (occurrence: SE)
  Receive Date: 20130329
  Receipt Date: 20130621
  Transmission Date: 20140414
  Serious: Yes (Other)
  Sender: FDA-Public Use
  Company Number: SE-ASTRAZENECA-2013SE18909

PATIENT
  Age: 142 Month
  Sex: Female

DRUGS (1)
  1. MERONEM [Suspect]
     Route: 042

REACTIONS (2)
  - Anaphylactic reaction [Unknown]
  - Rash [Recovered/Resolved]
